FAERS Safety Report 6355869-0 (Version None)
Quarter: 2009Q3

REPORT INFORMATION
  Report Type: 
  Country: None (occurrence: None)
  Receive Date: 20090910
  Receipt Date: 20090910
  Transmission Date: 20100115
  Serious: Yes (Hospitalization)
  Sender: FDA-Public Use
  Company Number: None

PATIENT
  Age: 69 Year
  Sex: Female
  Weight: 114 kg

DRUGS (2)
  1. TYGACIL [Suspect]
     Indication: SEPSIS
     Dosage: 100 MG SINGLE DOSE INTRAVENOUS
     Route: 042
     Dates: start: 20090825, end: 20090825
  2. TYGACIL [Suspect]
     Indication: SEPSIS
     Dosage: 50MG  Q 12 H INTRAVENOUS
     Route: 042
     Dates: start: 20090825, end: 20090826

REACTIONS (1)
  - HYPOGLYCAEMIA [None]
